FAERS Safety Report 8928054 (Version 1)
Quarter: 2012Q4

REPORT INFORMATION
  Report Type: Spontaneous
  Country: AR (occurrence: None)
  Receive Date: 20121120
  Receipt Date: 20121120
  Transmission Date: 20130627
  Serious: Yes (Death)
  Sender: FDA-Public Use
  Company Number: ENTC2012-0518

PATIENT
  Age: 81 Year

DRUGS (1)
  1. STALEVO (LEVODOPA, CARBIDOPA, ENTACAPONE) [Suspect]
     Indication: PARKINSON^S DISEASE
     Dosage: TWO OR THREE DAILY; STRENGTH 50 MG
     Dates: start: 20111125

REACTIONS (4)
  - Urinary tract infection [None]
  - Renal failure [None]
  - Skin discolouration [None]
  - White blood cell count increased [None]
